FAERS Safety Report 7448903-8 (Version None)
Quarter: 2011Q2

REPORT INFORMATION
  Report Type: 
  Country: None (occurrence: None)
  Receive Date: 20110429
  Receipt Date: 20100823
  Transmission Date: 20111010
  Serious: No
  Sender: FDA-Public Use
  Company Number: US-ASTRAZENECA-2010SE39953

PATIENT
  Age: 60 Year

DRUGS (2)
  1. NEXIUM [Suspect]
     Indication: GASTRITIS
     Route: 048
     Dates: start: 20060801
  2. NEXIUM [Suspect]
     Indication: GASTRIC ULCER
     Route: 048
     Dates: start: 20060801

REACTIONS (7)
  - CHRONIC SINUSITIS [None]
  - HYPERTENSION [None]
  - ARTHRITIS [None]
  - HYPERCHOLESTEROLAEMIA [None]
  - OESOPHAGEAL STENOSIS [None]
  - SCOLIOSIS [None]
  - PERIARTHRITIS [None]
